FAERS Safety Report 7298123-5 (Version None)
Quarter: 2011Q1

REPORT INFORMATION
  Report Type: 
  Country: None (occurrence: None)
  Receive Date: 20110217
  Receipt Date: 20110209
  Transmission Date: 20110831
  Serious: Yes (Other)
  Sender: FDA-Public Use
  Company Number: US-ABBOTT-11P-163-0704044-00

PATIENT
  Sex: Male
  Weight: 64.468 kg

DRUGS (9)
  1. CLONAZEPAM [Concomitant]
     Indication: PRODUCT USED FOR UNKNOWN INDICATION
  2. VALCYTE [Concomitant]
     Route: 048
     Dates: start: 20110101
  3. OMEPRAZOLE [Concomitant]
     Indication: PRODUCT USED FOR UNKNOWN INDICATION
  4. HUMIRA [Suspect]
     Indication: CROHN'S DISEASE
     Route: 058
     Dates: start: 20090601, end: 20090801
  5. LIALDA [Concomitant]
     Indication: PRODUCT USED FOR UNKNOWN INDICATION
  6. MERCAPTOPURINE [Concomitant]
     Indication: PRODUCT USED FOR UNKNOWN INDICATION
  7. ZOLOFT [Concomitant]
     Indication: PRODUCT USED FOR UNKNOWN INDICATION
  8. HUMIRA [Suspect]
     Dates: start: 20100601, end: 20100801
  9. VALCYTE [Concomitant]
     Indication: CYTOMEGALOVIRUS INFECTION
     Dates: start: 20101001, end: 20101101

REACTIONS (10)
  - INTESTINAL OBSTRUCTION [None]
  - DIARRHOEA [None]
  - ANAEMIA [None]
  - HYPOAESTHESIA [None]
  - PARAESTHESIA [None]
  - ABDOMINAL PAIN [None]
  - COLITIS HERPES [None]
  - PYREXIA [None]
  - CROHN'S DISEASE [None]
  - CYTOMEGALOVIRUS GASTROINTESTINAL INFECTION [None]
